FAERS Safety Report 6470502-5 (Version None)
Quarter: 2009Q4

REPORT INFORMATION
  Report Type: 
  Country: None (occurrence: None)
  Receive Date: 20091201
  Receipt Date: 20091116
  Transmission Date: 20100525
  Serious: Yes (Hospitalization, Disabling, Other)
  Sender: FDA-Public Use
  Company Number: 230001J09RUS

PATIENT
  Age: 47 Year
  Sex: Female
  Weight: 55 kg

DRUGS (2)
  1. REBIF [Suspect]
     Indication: MULTIPLE SCLEROSIS
     Dosage: 44 MCG
     Dates: start: 20080416, end: 20081101
  2. REBIF [Suspect]
     Dosage: 22 MCG
     Dates: start: 20081101, end: 20081110

REACTIONS (45)
  - ALANINE AMINOTRANSFERASE INCREASED [None]
  - ARRHYTHMIA [None]
  - ARTHRALGIA [None]
  - ASPARTATE AMINOTRANSFERASE INCREASED [None]
  - BUNDLE BRANCH BLOCK RIGHT [None]
  - CARDIAC DISORDER [None]
  - CHOLECYSTITIS CHRONIC [None]
  - CONDITION AGGRAVATED [None]
  - CONVULSION [None]
  - DECREASED APPETITE [None]
  - DEPERSONALISATION [None]
  - DEPRESSION [None]
  - DIZZINESS [None]
  - DUODENAL ULCER [None]
  - HEADACHE [None]
  - HYDROCEPHALUS [None]
  - INJECTION SITE ERYTHEMA [None]
  - INJECTION SITE PAIN [None]
  - INJECTION SITE SWELLING [None]
  - INSOMNIA [None]
  - IRON DEFICIENCY ANAEMIA [None]
  - LEFT VENTRICULAR HYPERTROPHY [None]
  - LIVER DISORDER [None]
  - MEMORY IMPAIRMENT [None]
  - MULTIPLE SCLEROSIS [None]
  - MYALGIA [None]
  - MYOFASCIAL PAIN SYNDROME [None]
  - NAUSEA [None]
  - OPTIC ATROPHY [None]
  - OSTEOCHONDROSIS [None]
  - PALPITATIONS [None]
  - PANCREATITIS CHRONIC [None]
  - PROGRESSIVE MULTIPLE SCLEROSIS [None]
  - PYELONEPHRITIS [None]
  - PYELONEPHRITIS CHRONIC [None]
  - PYREXIA [None]
  - RELAPSING-REMITTING MULTIPLE SCLEROSIS [None]
  - RETINAL VASCULAR DISORDER [None]
  - SINUS BRADYCARDIA [None]
  - SLEEP DISORDER [None]
  - SUICIDAL IDEATION [None]
  - TACHYCARDIA [None]
  - VISUAL ACUITY REDUCED [None]
  - VISUAL IMPAIRMENT [None]
  - WRONG TECHNIQUE IN DRUG USAGE PROCESS [None]
